FAERS Safety Report 4468106-9 (Version None)
Quarter: 2004Q4

REPORT INFORMATION
  Report Type: 
  Country: None (occurrence: None)
  Receive Date: 20041001
  Receipt Date: 20040913
  Transmission Date: 20050328
  Serious: Yes (Other)
  Sender: FDA-Public Use
  Company Number: 8865

PATIENT
  Age: 19 Year
  Sex: Female

DRUGS (4)
  1. METHOTREXATE [Suspect]
  2. PREDNISOLONE [Suspect]
  3. ENBREL [Suspect]
     Indication: JUVENILE ARTHRITIS
     Dosage: 25 MG 2/WK SC
     Route: 058
     Dates: start: 20030701, end: 20030901
  4. INFLIXIMAB [Concomitant]

REACTIONS (3)
  - HALLUCINATION, AUDITORY [None]
  - PSYCHOTIC DISORDER [None]
  - SOCIAL AVOIDANT BEHAVIOUR [None]
